FAERS Safety Report 7820954-0 (Version None)
Quarter: 2011Q4

REPORT INFORMATION
  Report Type: 
  Country: None (occurrence: None)
  Receive Date: 20111018
  Receipt Date: 20110928
  Transmission Date: 20120403
  Serious: Yes (Hospitalization)
  Sender: FDA-Public Use
  Company Number: DE-GLAXOSMITHKLINE-D0072889A

PATIENT
  Sex: Female
  Weight: 140 kg

DRUGS (11)
  1. BISOPROLOL FUMARATE [Concomitant]
     Indication: HYPERTENSION
     Route: 065
  2. MAGNESIUM [Concomitant]
     Route: 065
  3. CALCILAC [Concomitant]
     Route: 065
  4. RASILEZ [Concomitant]
     Indication: HYPERTENSION
     Route: 065
  5. TORSEMIDE [Concomitant]
     Route: 065
  6. OMEPRAZOLE [Concomitant]
     Route: 065
  7. MOXONIDIN [Concomitant]
     Route: 065
  8. ZINC [Concomitant]
     Route: 065
  9. VITAMIN E [Concomitant]
     Route: 065
  10. PROMACTA [Suspect]
     Indication: IDIOPATHIC THROMBOCYTOPENIC PURPURA
     Dosage: 50MG PER DAY
     Route: 048
     Dates: start: 20101001
  11. FOLIC ACID [Concomitant]
     Route: 065

REACTIONS (1)
  - SKIN ULCER [None]
